FAERS Safety Report 7503290-1 (Version None)
Quarter: 2011Q2

REPORT INFORMATION
  Report Type: 
  Country: None (occurrence: None)
  Receive Date: 20110525
  Receipt Date: 20110512
  Transmission Date: 20111010
  Serious: Yes (Hospitalization)
  Sender: FDA-Public Use
  Company Number: US-ACTELION-A-NJ2011-46665

PATIENT

DRUGS (4)
  1. EPOPROSTENOL SODIUM [Concomitant]
     Indication: PULMONARY ARTERIAL HYPERTENSION
     Dosage: UNK
     Route: 041
     Dates: start: 20110101, end: 20110101
  2. CALCIUM CHANNEL BLOCKERS [Concomitant]
  3. ASPIRIN [Concomitant]
  4. TRACLEER [Suspect]
     Indication: PULMONARY ARTERIAL HYPERTENSION
     Dosage: UNK
     Route: 048
     Dates: start: 20061025

REACTIONS (4)
  - DIARRHOEA [None]
  - ULCER [None]
  - VOMITING [None]
  - ABDOMINAL PAIN UPPER [None]
